FAERS Safety Report 15653294 (Version 1)
Quarter: 2018Q4

REPORT INFORMATION
  Report Type: Spontaneous
  Country: CN (occurrence: CN)
  Receive Date: 20181123
  Receipt Date: 20181123
  Transmission Date: 20190205
  Serious: Yes (Other)
  Sender: FDA-Public Use
  Company Number: CN-ROCHE-2218912

PATIENT

DRUGS (8)
  1. CISPLATIN. [Concomitant]
     Active Substance: CISPLATIN
     Indication: INVASIVE DUCTAL BREAST CARCINOMA
     Route: 033
     Dates: start: 20180404
  2. HERCEPTIN [Suspect]
     Active Substance: TRASTUZUMAB
     Dosage: THERAPY RESTARTED AFTER LIVER METASTASIS WAS FOUND IN JUNE 2017
     Route: 065
  3. PACLITAXEL. [Concomitant]
     Active Substance: PACLITAXEL
     Indication: INVASIVE DUCTAL BREAST CARCINOMA
  4. LETROZOLE. [Concomitant]
     Active Substance: LETROZOLE
     Indication: INVASIVE DUCTAL BREAST CARCINOMA
  5. HERCEPTIN [Suspect]
     Active Substance: TRASTUZUMAB
     Dosage: REGIMEN START DATE: 04/APR/2018
     Route: 065
     Dates: end: 201807
  6. HERCEPTIN [Suspect]
     Active Substance: TRASTUZUMAB
     Indication: INVASIVE DUCTAL BREAST CARCINOMA
     Dosage: THERAPY STARTED AFTER THE SURGERY AND COMPLETED ON AN UNSPECIFIED DATE
     Route: 065
  7. HERCEPTIN [Suspect]
     Active Substance: TRASTUZUMAB
     Dosage: REGIMEN START DATE: 21/SEP/2018
     Route: 065
  8. DOCETAXEL. [Concomitant]
     Active Substance: DOCETAXEL
     Indication: INVASIVE DUCTAL BREAST CARCINOMA
     Route: 065
     Dates: start: 20180921

REACTIONS (3)
  - Ascites [Recovered/Resolved]
  - Tumour haemorrhage [Unknown]
  - Tumour rupture [Unknown]

NARRATIVE: CASE EVENT DATE: 20180401
